FAERS Safety Report 6517629-7 (Version None)
Quarter: 2009Q4

REPORT INFORMATION
  Report Type: 
  Country: None (occurrence: None)
  Receive Date: 20091224
  Receipt Date: 20091215
  Transmission Date: 20100525
  Serious: Yes (Other)
  Sender: FDA-Public Use
  Company Number: PHHY2009DE52616

PATIENT
  Sex: Male
  Weight: 75 kg

DRUGS (5)
  1. TEGRETOL RETARD [Suspect]
     Indication: SCHIZOAFFECTIVE DISORDER
     Dosage: 2 X 400MG, DAILY
     Route: 048
     Dates: start: 20060101
  2. TEGRETOL RETARD [Suspect]
     Dosage: UNK
  3. ZYPREXA [Concomitant]
     Indication: SCHIZOAFFECTIVE DISORDER
     Dosage: 200 MG, UNK
     Dates: start: 20060101
  4. HALOPERIDOL [Concomitant]
     Indication: SCHIZOAFFECTIVE DISORDER
     Dosage: EVERY 4 WEEKS
     Route: 030
     Dates: start: 20060101
  5. JODTHYROX [Concomitant]
     Dosage: 1 DF/ DAY

REACTIONS (1)
  - UVEITIS [None]
